FAERS Safety Report 19352751 (Version 1)
Quarter: 2021Q2

REPORT INFORMATION
  Report Type: Spontaneous
  Country: US (occurrence: US)
  Receive Date: 20210531
  Receipt Date: 20210531
  Transmission Date: 20210717
  Serious: No
  Sender: FDA-Public Use
  Company Number: US-ASTRAZENECA-2021A455866

PATIENT
  Age: 18393 Day
  Sex: Female
  Weight: 95.2 kg

DRUGS (2)
  1. COVID?19 VACCINE NOS. [Suspect]
     Active Substance: COVID-19 VACCINE NOS
     Dosage: LEFT ARM, SHE DOES NOT KNOW DOSE SHE LOOKED AWAY.
     Route: 065
     Dates: start: 20210514
  2. SEROQUEL [Suspect]
     Active Substance: QUETIAPINE FUMARATE
     Dosage: UNKNOWN
     Route: 048

REACTIONS (8)
  - SARS-CoV-2 test negative [Unknown]
  - Dizziness [Unknown]
  - Pruritus [Unknown]
  - Arthralgia [Unknown]
  - Dyspnoea [Unknown]
  - Back pain [Unknown]
  - Hypoaesthesia [Unknown]
  - Neck pain [Unknown]

NARRATIVE: CASE EVENT DATE: 20210514
